FAERS Safety Report 10258535 (Version 2)
Quarter: 2014Q2

REPORT INFORMATION
  Report Type: Report from Study
  Country: CA (occurrence: CA)
  Receive Date: 20140625
  Receipt Date: 20140625
  Transmission Date: 20141212
  Serious: Yes (Death)
  Sender: FDA-Public Use
  Company Number: PHHY2013CA043323

PATIENT
  Age: 65 Year
  Sex: Female

DRUGS (8)
  1. EXJADE [Suspect]
     Indication: MYELODYSPLASTIC SYNDROME
     Dosage: 1500 MG, QD
     Route: 048
  2. EXJADE [Suspect]
     Dosage: 500 MG, BID
     Dates: start: 20130318, end: 20130419
  3. EXJADE [Suspect]
     Dosage: 1 DF, UNK
  4. EXJADE [Suspect]
     Dosage: 2 DF, UNK
  5. EXJADE [Suspect]
     Dosage: 3 DF, UNK
  6. VITAMIN A [Concomitant]
     Dosage: UNK UKN, UNK
  7. CLONAZEPAM [Concomitant]
     Dosage: 0.5 MG
  8. VITAMIN D [Concomitant]
     Dosage: Q2D, UKN, UNK

REACTIONS (6)
  - Death [Fatal]
  - Liver function test abnormal [Unknown]
  - Aspartate aminotransferase increased [Unknown]
  - Blood alkaline phosphatase increased [Unknown]
  - Gamma-glutamyltransferase increased [Unknown]
  - Transaminases increased [Unknown]
